FAERS Safety Report 5827879-0 (Version None)
Quarter: 2008Q3

REPORT INFORMATION
  Report Type: 
  Country: None (occurrence: None)
  Receive Date: 20080730
  Receipt Date: 20080718
  Transmission Date: 20090109
  Serious: Yes (Hospitalization)
  Sender: FDA-Public Use
  Company Number: IT-PFIZER INC-2008045249

PATIENT
  Sex: Female
  Weight: 96 kg

DRUGS (18)
  1. SU-011,248 [Suspect]
     Indication: BREAST CANCER METASTATIC
     Route: 048
     Dates: start: 20080521, end: 20080522
  2. SU-011,248 [Suspect]
     Indication: BREAST CANCER
  3. CAPECITABINE [Suspect]
     Indication: BREAST CANCER METASTATIC
     Route: 048
     Dates: start: 20080319, end: 20080421
  4. CAPECITABINE [Suspect]
     Indication: BREAST CANCER
  5. PREGABALIN [Concomitant]
     Route: 048
  6. GLIBENCLAMIDE [Concomitant]
     Indication: DIABETES MELLITUS
     Route: 048
  7. INSULIN [Concomitant]
     Indication: DIABETES MELLITUS
     Route: 058
  8. ATENOLOL [Concomitant]
     Indication: HYPERTENSION
     Route: 048
  9. RABEPRAZOLE SODIUM [Concomitant]
     Route: 048
  10. BUPRENORPHINE HCL [Concomitant]
     Route: 062
  11. ASPIRIN [Concomitant]
     Route: 048
  12. ATORVASTATIN CALCIUM [Concomitant]
     Indication: HYPERCHOLESTEROLAEMIA
     Route: 048
  13. SELEPARINA [Concomitant]
     Route: 058
  14. NIMESULIDE [Concomitant]
     Route: 048
  15. MACROGOL [Concomitant]
     Route: 048
  16. QUINAPRIL [Concomitant]
     Indication: HYPERTENSION
     Route: 048
  17. MORPHINE [Concomitant]
     Route: 058
     Dates: start: 20080415, end: 20080415
  18. AUGMENTIN '125' [Concomitant]
     Route: 048
     Dates: start: 20080502, end: 20080509

REACTIONS (2)
  - CHEST PAIN [None]
  - VOMITING [None]
